FAERS Safety Report 24928190 (Version 1)
Quarter: 2025Q1

REPORT INFORMATION
  Report Type: Spontaneous
  Country: CA (occurrence: CA)
  Receive Date: 20250205
  Receipt Date: 20250205
  Transmission Date: 20250409
  Serious: Yes (Other)
  Sender: PFIZER
  Company Number: CA-PFIZER INC-202500025027

PATIENT
  Age: 70 Year
  Sex: Male

DRUGS (3)
  1. XELJANZ [Suspect]
     Active Substance: TOFACITINIB CITRATE
     Indication: Rheumatoid arthritis
     Dosage: 5 MG, 2X/DAY
     Route: 048
     Dates: start: 20201114, end: 202501
  2. PREDNISONE [Concomitant]
     Active Substance: PREDNISONE
  3. MOMETASONE [Concomitant]
     Active Substance: MOMETASONE

REACTIONS (1)
  - Nephrolithiasis [Unknown]
